FAERS Safety Report 24358508 (Version 2)
Quarter: 2024Q4

REPORT INFORMATION
  Report Type: Spontaneous
  Country: US (occurrence: US)
  Receive Date: 20240924
  Receipt Date: 20241022
  Transmission Date: 20250115
  Serious: No
  Sender: BRISTOL-MYERS SQUIBB COMPANY
  Company Number: US-BRISTOL-MYERS SQUIBB COMPANY-2024-150495

PATIENT
  Age: 74 Year
  Sex: Female
  Weight: 93.44 kg

DRUGS (1)
  1. ONUREG [Suspect]
     Active Substance: AZACITIDINE
     Indication: Acute myeloid leukaemia
     Dosage: DAILY
     Route: 048

REACTIONS (2)
  - Diarrhoea [Recovering/Resolving]
  - Vomiting [Recovering/Resolving]
